FAERS Safety Report 9723278 (Version 1)
Quarter: 2013Q4

REPORT INFORMATION
  Report Type: Spontaneous
  Country: AU (occurrence: AU)
  Receive Date: 20131202
  Receipt Date: 20131202
  Transmission Date: 20140711
  Serious: Yes (Other)
  Sender: FDA-Public Use
  Company Number: PHHY2013AU139524

PATIENT
  Sex: Male

DRUGS (1)
  1. EXFORGE HCT [Suspect]
     Dosage: 1 DF (160 MG VAL/ 5 MG AMLO / 12.5 MG HCTZ) DAILY

REACTIONS (3)
  - Intestinal obstruction [Unknown]
  - Lactose intolerance [Unknown]
  - Diarrhoea [Unknown]
